FAERS Safety Report 20456419 (Version 1)
Quarter: 2022Q1

REPORT INFORMATION
  Report Type: Spontaneous
  Country: US (occurrence: US)
  Receive Date: 20220210
  Receipt Date: 20220210
  Transmission Date: 20220423
  Serious: No
  Sender: FDA-Public Use
  Company Number: US-SANOFI-00955257

PATIENT
  Age: 3 Month
  Sex: Female

DRUGS (2)
  1. IPOL [Suspect]
     Active Substance: POLIOVIRUS TYPE 1 ANTIGEN (FORMALDEHYDE INACTIVATED)\POLIOVIRUS TYPE 2 ANTIGEN (FORMALDEHYDE INACTIV
     Indication: Immunisation
     Dosage: .5 ML
     Route: 030
     Dates: start: 20211210, end: 20211210
  2. TUBERSOL [Suspect]
     Active Substance: TUBERCULIN PURIFIED PROTEIN DERIVATIVE
     Indication: Immunisation

REACTIONS (1)
  - Product temperature excursion issue [Unknown]

NARRATIVE: CASE EVENT DATE: 20211210
